FAERS Safety Report 9298365 (Version 4)
Quarter: 2013Q3

REPORT INFORMATION
  Report Type: Spontaneous
  Country: US (occurrence: None)
  Receive Date: 20130515
  Receipt Date: 20130702
  Transmission Date: 20140515
  Serious: Yes (Hospitalization)
  Sender: FDA-Public Use
  Company Number: ACO_35381_2013

PATIENT
  Age: 74 Year
  Sex: Female

DRUGS (8)
  1. AMPYRA [Suspect]
     Indication: GAIT DISTURBANCE
     Route: 048
     Dates: start: 201212, end: 201301
  2. AMPYRA [Suspect]
     Indication: BALANCE DISORDER
     Route: 048
     Dates: start: 201212, end: 201301
  3. ER (METFORMIN HYDROCHLORIDE) [Concomitant]
  4. CYMBALTA (DULOXETINE HYDROCHLORIDE) [Concomitant]
  5. XANAX (ALPRAZOLAM) [Concomitant]
  6. ALLERGY MEDICATION [Concomitant]
  7. RESTASIS (CICLOSPORIN) [Concomitant]
  8. LASIX (FUROSEMIDE SODIUM) [Concomitant]

REACTIONS (4)
  - Autoimmune disorder [None]
  - Cystitis [None]
  - Dry throat [None]
  - Incontinence [None]
